FAERS Safety Report 5069704-4 (Version None)
Quarter: 2006Q3

REPORT INFORMATION
  Report Type: 
  Country: None (occurrence: None)
  Receive Date: 20060803
  Receipt Date: 20060623
  Transmission Date: 20061208
  Serious: Yes (Other)
  Sender: FDA-Public Use
  Company Number: PHBS2006BR09551

PATIENT
  Age: 23 Year
  Sex: Female
  Weight: 74 kg

DRUGS (2)
  1. TRILEPTAL [Suspect]
     Indication: CONVULSION
     Dosage: 300 MG/D
     Route: 048
     Dates: start: 20030101
  2. TRILEPTAL [Suspect]
     Dosage: 150 MG/D
     Route: 048

REACTIONS (6)
  - DIZZINESS [None]
  - ERYTHEMA [None]
  - HEADACHE [None]
  - PHARYNGEAL OEDEMA [None]
  - VOMITING [None]
  - WEIGHT INCREASED [None]
